FAERS Safety Report 10803151 (Version 2)
Quarter: 2015Q2

REPORT INFORMATION
  Report Type: Report from Study
  Country: DE (occurrence: DE)
  Receive Date: 20150217
  Receipt Date: 20150507
  Transmission Date: 20150821
  Serious: Yes (Death, Other)
  Sender: FDA-Public Use
  Company Number: DE-CELGENE-062-21880-13072731

PATIENT

DRUGS (1)
  1. REVLIMID [Suspect]
     Active Substance: LENALIDOMIDE
     Indication: 5Q MINUS SYNDROME
     Dosage: 10 MILLIGRAM
     Route: 048

REACTIONS (11)
  - Death [Fatal]
  - Urinary tract disorder [Unknown]
  - No therapeutic response [Unknown]
  - Meningitis [Unknown]
  - Cerebral infarction [Unknown]
  - Palpitations [Unknown]
  - Ulna fracture [Unknown]
  - Full blood count decreased [Unknown]
  - Infection [Unknown]
  - Myelodysplastic syndrome [Unknown]
  - Joint effusion [Unknown]
